FAERS Safety Report 19756704 (Version 1)
Quarter: 2021Q3

REPORT INFORMATION
  Report Type: Spontaneous
  Country: FR (occurrence: FR)
  Receive Date: 20210827
  Receipt Date: 20210827
  Transmission Date: 20211014
  Serious: Yes (Other)
  Sender: FDA-Public Use
  Company Number: NVSC2021FR192752

PATIENT
  Age: 72 Year
  Sex: Female

DRUGS (2)
  1. EXJADE [Suspect]
     Active Substance: DEFERASIROX
     Indication: IRON OVERLOAD
     Dosage: 2 DF, QD
     Route: 065
     Dates: start: 20010820
  2. JAKAVI [Suspect]
     Active Substance: RUXOLITINIB
     Indication: PRODUCT USED FOR UNKNOWN INDICATION
     Dosage: 2 DF, QD (2 PER DAY FOR 15 DAYS)
     Route: 065
     Dates: start: 20210805

REACTIONS (4)
  - Inappropriate schedule of product administration [Unknown]
  - Escherichia infection [Unknown]
  - Splenomegaly [Unknown]
  - Urinary tract infection [Unknown]
